FAERS Safety Report 18777294 (Version 1)
Quarter: 2021Q1

REPORT INFORMATION
  Report Type: Spontaneous
  Country: US (occurrence: US)
  Receive Date: 20210123
  Receipt Date: 20210123
  Transmission Date: 20210419
  Serious: Yes (Hospitalization, Other)
  Sender: FDA-Public Use
  Company Number: US-JNJFOC-20210121524

PATIENT
  Age: 71 Year
  Sex: Female

DRUGS (1)
  1. PARACETAMOL [Suspect]
     Active Substance: ACETAMINOPHEN
     Indication: PRODUCT USED FOR UNKNOWN INDICATION
     Route: 065

REACTIONS (5)
  - International normalised ratio increased [Unknown]
  - Blood creatinine increased [Unknown]
  - Analgesic drug level increased [Unknown]
  - Pyroglutamate increased [Unknown]
  - Metabolic acidosis [Not Recovered/Not Resolved]
